FAERS Safety Report 15963747 (Version 1)
Quarter: 2019Q1

REPORT INFORMATION
  Report Type: Spontaneous
  Country: US (occurrence: US)
  Receive Date: 20190214
  Receipt Date: 20190214
  Transmission Date: 20190417
  Serious: No
  Sender: FDA-Public Use
  Company Number: US-TEVA-2019-US-1002770

PATIENT
  Sex: Male

DRUGS (2)
  1. CLONAZEPAM TABLETS [Suspect]
     Active Substance: CLONAZEPAM
     Indication: SEIZURE
  2. CLONAZEPAM TABLETS [Suspect]
     Active Substance: CLONAZEPAM
     Indication: SLEEP DISORDER
     Route: 065

REACTIONS (2)
  - Product substitution issue [Unknown]
  - Drug effect incomplete [Unknown]
